FAERS Safety Report 4492427-7 (Version None)
Quarter: 2004Q4

REPORT INFORMATION
  Report Type: 
  Country: None (occurrence: None)
  Receive Date: 20041029
  Receipt Date: 20041020
  Transmission Date: 20050328
  Serious: Yes (Hospitalization)
  Sender: FDA-Public Use
  Company Number: K200401638

PATIENT
  Age: 76 Year
  Sex: Male

DRUGS (8)
  1. ALTACE [Suspect]
     Dosage: 2.5 MG, QD, ORAL
     Route: 048
     Dates: start: 20040126, end: 20040501
  2. ALTACE [Suspect]
     Dosage: 2.5 MG, QD, ORAL
     Route: 048
     Dates: start: 20040514, end: 20040514
  3. MIXTARD HUMAN 70/30 [Concomitant]
  4. LESCOL [Concomitant]
  5. GLUCOR (ACARBOSE) [Concomitant]
  6. PLAVIX [Concomitant]
  7. AMLODIPINE BESYLATE [Concomitant]
  8. BECLOMETHASONE DIPROPIONATE [Concomitant]

REACTIONS (10)
  - BRONCHIAL OEDEMA [None]
  - BRONCHOSPASM [None]
  - COUGH [None]
  - DYSPNOEA [None]
  - INFLAMMATION [None]
  - PERICARDIAL EFFUSION [None]
  - PULMONARY CONGESTION [None]
  - PULMONARY OEDEMA [None]
  - PYREXIA [None]
  - WHEEZING [None]
